FAERS Safety Report 5427441-8 (Version None)
Quarter: 2007Q3

REPORT INFORMATION
  Report Type: 
  Country: None (occurrence: None)
  Receive Date: 20070828
  Receipt Date: 20070820
  Transmission Date: 20080115
  Serious: Yes (Other)
  Sender: FDA-Public Use
  Company Number: IL-ELI_LILLY_AND_COMPANY-US_020584291

PATIENT
  Age: 65 Year
  Sex: Male

DRUGS (3)
  1. GEMCITABINE HCL [Suspect]
     Indication: ADENOCARCINOMA
     Dosage: 1000 MG/M2, WEEKLY (1/W)
  2. GRANISETRON [Concomitant]
     Indication: PROPHYLAXIS OF NAUSEA AND VOMITING
     Dosage: 3 MG, UNKNOWN
     Route: 042
  3. DEXAMETHASONE [Concomitant]
     Indication: PROPHYLAXIS OF NAUSEA AND VOMITING
     Dosage: 8 MG, UNKNOWN
     Route: 042

REACTIONS (3)
  - PAIN [None]
  - PYREXIA [None]
  - RECALL PHENOMENON [None]
